FAERS Safety Report 19620746 (Version 1)
Quarter: 2021Q3

REPORT INFORMATION
  Report Type: Spontaneous
  Country: US (occurrence: US)
  Receive Date: 20210728
  Receipt Date: 20210728
  Transmission Date: 20211014
  Serious: Yes (Other)
  Sender: FDA-Public Use
  Company Number: None

PATIENT
  Age: 78 Year
  Sex: Male
  Weight: 77.1 kg

DRUGS (1)
  1. CASIRIVIMAB/IMDEVIMAB [Suspect]
     Active Substance: CASIRIVIMAB\IMDEVIMAB
     Indication: COVID-19
     Dosage: ?          OTHER FREQUENCY:ONCE;?
     Route: 042
     Dates: start: 20210727, end: 20210727

REACTIONS (7)
  - Infusion related reaction [None]
  - Hypotension [None]
  - Therapeutic product effect delayed [None]
  - Tachycardia [None]
  - Pyrexia [None]
  - Blood pressure increased [None]
  - Oxygen saturation decreased [None]

NARRATIVE: CASE EVENT DATE: 20210727
